FAERS Safety Report 9460252 (Version 1)
Quarter: 2013Q3

REPORT INFORMATION
  Report Type: Spontaneous
  Country: DE (occurrence: DE)
  Receive Date: 20130815
  Receipt Date: 20130815
  Transmission Date: 20140515
  Serious: Yes (Other)
  Sender: FDA-Public Use
  Company Number: DE-JNJFOC-20130807098

PATIENT
  Age: 53 Year
  Sex: Female
  Weight: 59.86 kg

DRUGS (6)
  1. XARELTO [Suspect]
     Indication: THROMBOSIS PROPHYLAXIS
     Route: 048
  2. XARELTO [Suspect]
     Indication: THROMBOSIS PROPHYLAXIS
     Route: 048
     Dates: start: 20130514, end: 20130701
  3. XARELTO [Suspect]
     Indication: PULMONARY EMBOLISM
     Route: 048
  4. XARELTO [Suspect]
     Indication: PULMONARY EMBOLISM
     Route: 048
     Dates: start: 20130514, end: 20130701
  5. PANTOPRAZOLE [Concomitant]
     Indication: GASTRECTOMY
     Route: 065
  6. FERRLECIT [Concomitant]
     Route: 042

REACTIONS (1)
  - Dyspnoea at rest [Recovered/Resolved]
